FAERS Safety Report 6184383-0 (Version None)
Quarter: 2009Q2

REPORT INFORMATION
  Report Type: 
  Country: None (occurrence: None)
  Receive Date: 20090507
  Receipt Date: 20090507
  Transmission Date: 20091009
  Serious: No
  Sender: FDA-Public Use
  Company Number: None

PATIENT
  Sex: Female
  Weight: 62.5964 kg

DRUGS (1)
  1. FENTANYL CITRATE [Suspect]
     Indication: MALIGNANT NEOPLASM OF SPINAL CORD
     Dosage: 800 MCG 3-4 DAILY MOUTH
     Route: 048

REACTIONS (2)
  - PRODUCT QUALITY ISSUE [None]
  - PRODUCT SUBSTITUTION ISSUE [None]
